FAERS Safety Report 4962723-5 (Version None)
Quarter: 2006Q2

REPORT INFORMATION
  Report Type: 
  Country: None (occurrence: None)
  Receive Date: 20060404
  Receipt Date: 20051026
  Transmission Date: 20061013
  Serious: Yes (Hospitalization, Other)
  Sender: FDA-Public Use
  Company Number: US-MERCK-0510USA09485

PATIENT
  Age: 62 Year
  Sex: Female
  Weight: 65 kg

DRUGS (56)
  1. COREG [Concomitant]
     Indication: CARDIAC FAILURE CONGESTIVE
     Route: 065
     Dates: start: 20040220, end: 20050420
  2. PLAVIX [Concomitant]
     Indication: ANTIPLATELET THERAPY
     Route: 065
     Dates: start: 20040221, end: 20050101
  3. BUMEX [Concomitant]
     Indication: HYPERTENSION
     Route: 065
     Dates: end: 20040101
  4. BUMEX [Concomitant]
     Indication: CARDIAC FAILURE CONGESTIVE
     Route: 065
     Dates: end: 20040101
  5. CORDARONE [Concomitant]
     Indication: HEART RATE IRREGULAR
     Route: 065
     Dates: start: 20040101, end: 20050101
  6. LASIX [Concomitant]
     Indication: BLOOD PRESSURE
     Route: 065
     Dates: end: 20040101
  7. LASIX [Concomitant]
     Indication: SWELLING
     Route: 065
     Dates: end: 20040101
  8. LORTAB [Concomitant]
     Indication: PAIN
     Route: 065
  9. ACIPHEX [Concomitant]
     Indication: GASTROOESOPHAGEAL REFLUX DISEASE
     Route: 065
  10. ATIVAN [Concomitant]
     Indication: ANXIETY
     Route: 065
     Dates: start: 19990325
  11. LOPRESSOR [Concomitant]
     Route: 065
     Dates: start: 20040220, end: 20050420
  12. TENORMIN [Concomitant]
     Route: 065
     Dates: start: 20040220, end: 20050420
  13. LOPID [Concomitant]
     Route: 065
     Dates: start: 20000101, end: 20020101
  14. INSPRA [Concomitant]
     Route: 065
     Dates: start: 20040101, end: 20050101
  15. ALDACTONE [Concomitant]
     Route: 065
     Dates: end: 20040101
  16. VIOXX [Suspect]
     Indication: GOUT
     Route: 048
     Dates: start: 20030716, end: 20040501
  17. ALPRAZOLAM [Concomitant]
     Route: 065
  18. GEMFIBROZIL [Concomitant]
     Indication: BLOOD CHOLESTEROL
     Route: 065
  19. HYDROCHLOROTHIAZIDE AND TRIAMTERENE [Concomitant]
     Route: 065
  20. MACROBID [Concomitant]
     Indication: URINARY TRACT INFECTION
     Route: 065
  21. NITROFURANTOIN [Concomitant]
     Route: 065
  22. DOXYCYCLINE [Concomitant]
     Route: 065
  23. ASPIRIN [Concomitant]
     Indication: ANTICOAGULANT THERAPY
     Route: 065
  24. AMBIEN [Concomitant]
     Route: 065
  25. AMIODARONE [Concomitant]
     Route: 065
  26. PROTONIX [Concomitant]
     Indication: GASTROOESOPHAGEAL REFLUX DISEASE
     Route: 065
  27. PROMETHAZINE [Concomitant]
     Route: 065
  28. [THERAPY UNSPECIFIED] [Concomitant]
     Indication: URINARY TRACT INFECTION
     Route: 065
  29. ISOSORBIDE [Concomitant]
     Indication: PROPHYLAXIS
     Route: 065
     Dates: start: 20040101, end: 20050101
  30. PREVACID [Concomitant]
     Route: 065
  31. HYDROCODONE BITARTRATE + ACETAMINOPHEN [Concomitant]
     Route: 065
  32. VICODIN [Concomitant]
     Indication: PAIN
     Route: 065
  33. MAXZIDE [Concomitant]
     Indication: BLOOD PRESSURE
     Route: 065
     Dates: start: 20040101, end: 20050101
  34. LIPITOR [Concomitant]
     Indication: BLOOD CHOLESTEROL
     Route: 065
     Dates: start: 20000101, end: 20020101
  35. COUMADIN [Concomitant]
     Indication: COAGULOPATHY
     Route: 065
     Dates: start: 20040221, end: 20040420
  36. TRAMADOLOR [Concomitant]
     Indication: PAIN
     Route: 065
  37. XANAX [Concomitant]
     Indication: ANXIETY
     Route: 065
     Dates: start: 19990325
  38. CYANOCOBALAMIN [Concomitant]
     Indication: VITAMIN B12 DEFICIENCY
     Route: 065
  39. DARVOCET [Concomitant]
     Indication: PAIN
     Route: 065
  40. ZESTRIL [Concomitant]
     Indication: BLOOD PRESSURE
     Route: 065
  41. GLUCOTROL [Concomitant]
     Indication: DIABETES MELLITUS
     Route: 065
  42. ALLOPURINOL [Concomitant]
     Indication: GOUT
     Route: 065
  43. HYDRALAZINE [Concomitant]
     Indication: BLOOD PRESSURE
     Route: 065
     Dates: start: 20040101, end: 20050101
  44. ATROVENT [Concomitant]
     Indication: CHRONIC OBSTRUCTIVE PULMONARY DISEASE
     Route: 065
  45. ALBUTEROL [Concomitant]
     Indication: CHRONIC OBSTRUCTIVE PULMONARY DISEASE
     Route: 065
  46. DIABETA [Concomitant]
     Indication: DIABETES MELLITUS
     Route: 065
  47. [THERAPY UNSPECIFIED] [Concomitant]
     Indication: BLOOD PRESSURE
     Route: 065
  48. ADVAIR DISKUS 100/50 [Concomitant]
     Indication: CHRONIC OBSTRUCTIVE PULMONARY DISEASE
     Route: 065
  49. ZANTAC [Concomitant]
     Indication: GASTROOESOPHAGEAL REFLUX DISEASE
     Route: 065
  50. POTASSIUM (UNSPECIFIED) [Concomitant]
     Route: 065
  51. FERROUS SULFATE [Concomitant]
     Route: 065
  52. AVAPRO [Concomitant]
     Indication: BLOOD PRESSURE
     Route: 065
  53. ACCUPRIL [Concomitant]
     Indication: BLOOD PRESSURE
     Route: 065
  54. ALLEGRA [Concomitant]
     Indication: HYPERSENSITIVITY
     Route: 065
  55. CANRENOATE POTASSIUM [Concomitant]
     Route: 065
     Dates: end: 20040101
  56. COREG [Concomitant]
     Indication: BLOOD PRESSURE
     Route: 065
     Dates: start: 20040220, end: 20050420

REACTIONS (19)
  - ANGINA PECTORIS [None]
  - ANXIETY DISORDER [None]
  - ARTERIOSCLEROSIS [None]
  - CARDIAC FAILURE CONGESTIVE [None]
  - CHEST PAIN [None]
  - CHRONIC OBSTRUCTIVE PULMONARY DISEASE [None]
  - CORONARY ARTERY DISEASE [None]
  - DEEP VEIN THROMBOSIS [None]
  - DISTURBANCE IN ATTENTION [None]
  - DRUG HYPERSENSITIVITY [None]
  - DYSPEPSIA [None]
  - DYSPNOEA [None]
  - HEART RATE IRREGULAR [None]
  - LUNG INJURY [None]
  - MYOCARDIAL INFARCTION [None]
  - RENAL DISORDER [None]
  - RENAL IMPAIRMENT [None]
  - SLEEP DISORDER [None]
  - SWELLING [None]
